FAERS Safety Report 5712888-2 (Version None)
Quarter: 2008Q2

REPORT INFORMATION
  Report Type: 
  Country: None (occurrence: None)
  Receive Date: 20080422
  Receipt Date: 20080416
  Transmission Date: 20081010
  Serious: Yes (Death, Life-Threatening)
  Sender: FDA-Public Use
  Company Number: B0517631A

PATIENT
  Age: 45 Year
  Sex: Female

DRUGS (2)
  1. ALBENDAZOLE [Suspect]
     Indication: FILARIASIS LYMPHATIC
     Dosage: 1TAB SINGLE DOSE
     Route: 048
     Dates: start: 20070616, end: 20070616
  2. DIETHYLCARBAMAZINE CITRATE [Suspect]
     Indication: FILARIASIS LYMPHATIC
     Dosage: 3TAB SINGLE DOSE
     Route: 048
     Dates: start: 20070616, end: 20070616

REACTIONS (6)
  - BLOOD ELECTROLYTES ABNORMAL [None]
  - DEATH [None]
  - DEHYDRATION [None]
  - HYPOVOLAEMIC SHOCK [None]
  - SENSORY DISTURBANCE [None]
  - VOMITING [None]
